FAERS Safety Report 4546410-3 (Version None)
Quarter: 2005Q1

REPORT INFORMATION
  Report Type: 
  Country: None (occurrence: None)
  Receive Date: 20050103
  Receipt Date: 20041220
  Transmission Date: 20050727
  Serious: Yes (Death, Life-Threatening)
  Sender: FDA-Public Use
  Company Number: 04P-087-0282413-00

PATIENT
  Age: 69 Year
  Sex: Male

DRUGS (8)
  1. SEVOFLURANE [Suspect]
     Indication: ANAESTHESIA
     Dosage: 0.5-1% INHALATION
     Route: 055
     Dates: start: 20000418, end: 20000418
  2. OXYGEN [Concomitant]
  3. FENTANYL [Concomitant]
  4. MIDAZOLAM HCL [Concomitant]
  5. DOPAMINE HCL [Concomitant]
  6. VECURONIUM BROMIDE [Concomitant]
  7. DROPERIDOL [Concomitant]
  8. THIOPENTAL SODIUM [Concomitant]

REACTIONS (6)
  - ANAESTHETIC COMPLICATION [None]
  - HAEMODIALYSIS [None]
  - MULTI-ORGAN FAILURE [None]
  - OLIGURIA [None]
  - RENAL FAILURE ACUTE [None]
  - RHABDOMYOLYSIS [None]
